FAERS Safety Report 9234943 (Version 1)
Quarter: 2013Q2

REPORT INFORMATION
  Report Type: Spontaneous
  Country: GB (occurrence: GB)
  Receive Date: 20130416
  Receipt Date: 20130416
  Transmission Date: 20140414
  Serious: Yes (Hospitalization)
  Sender: FDA-Public Use
  Company Number: GB-TEVA-397628ISR

PATIENT
  Sex: Male

DRUGS (2)
  1. AMIODARONE [Suspect]
     Indication: VENTRICULAR TACHYCARDIA
     Route: 065
     Dates: start: 201009
  2. CARDIAC MEDICATION NOS [Concomitant]

REACTIONS (2)
  - Abdominal symptom [Unknown]
  - Liver function test abnormal [Unknown]
